FAERS Safety Report 5141818-X (Version None)
Quarter: 2006Q4

REPORT INFORMATION
  Report Type: 
  Country: None (occurrence: None)
  Receive Date: 20061030
  Receipt Date: 20061016
  Transmission Date: 20070319
  Serious: Yes (Hospitalization)
  Sender: FDA-Public Use
  Company Number: 2006069156

PATIENT
  Age: 37 Year
  Sex: Female
  Weight: 59 kg

DRUGS (4)
  1. EXEMESTANE [Suspect]
     Indication: BREAST CANCER
     Dosage: 25 MG (25 MG, 1 IN 1 D) ORAL
     Route: 048
     Dates: start: 20060519
  2. DOXORUBICIN HCL [Suspect]
     Indication: BREAST CANCER
     Dosage: 100 MG (50 MG, A DAY EVERY 3 WEEKS), INTRAVENOUS
     Route: 042
     Dates: start: 20060519
  3. PACLITAXEL [Suspect]
     Indication: BREAST CANCER
     Dosage: 335 MG (300 MG, A DAY EVERY 3 WEEKS), INTRAMUSCULAR
     Route: 030
     Dates: start: 20060519
  4. LH-RH INJ (GONADORELIN ACETATE) [Concomitant]

REACTIONS (3)
  - ANAEMIA [None]
  - FEBRILE NEUTROPENIA [None]
  - PLATELET COUNT DECREASED [None]
